FAERS Safety Report 6189336-4 (Version None)
Quarter: 2009Q2

REPORT INFORMATION
  Report Type: 
  Country: None (occurrence: None)
  Receive Date: 20090512
  Receipt Date: 20090428
  Transmission Date: 20091009
  Serious: Yes (Hospitalization, Disabling)
  Sender: FDA-Public Use
  Company Number: 1-15760016

PATIENT
  Sex: Female

DRUGS (2)
  1. SULINDAC [Suspect]
     Indication: MUSCULOSKELETAL PAIN
     Dosage: ORAL
     Route: 048
     Dates: start: 20041201, end: 20050201
  2. ALEVE [Concomitant]

REACTIONS (40)
  - ACTIVATED PARTIAL THROMBOPLASTIN TIME PROLONGED [None]
  - ALANINE AMINOTRANSFERASE INCREASED [None]
  - ANAEMIA [None]
  - ASPARTATE AMINOTRANSFERASE INCREASED [None]
  - ATELECTASIS [None]
  - BLINDNESS UNILATERAL [None]
  - BLOOD ALKALINE PHOSPHATASE DECREASED [None]
  - BLOOD AMYLASE INCREASED [None]
  - CANDIDIASIS [None]
  - CANDIDURIA [None]
  - CATHETER RELATED INFECTION [None]
  - CONJUNCTIVITIS [None]
  - CORNEAL DISORDER [None]
  - CULTURE URINE POSITIVE [None]
  - DEEP VEIN THROMBOSIS [None]
  - DEHYDRATION [None]
  - DIARRHOEA [None]
  - DISEASE COMPLICATION [None]
  - DRUG INEFFECTIVE [None]
  - DRUG RESISTANCE [None]
  - EPISTAXIS [None]
  - FUNGUS SPUTUM TEST POSITIVE [None]
  - HAEMATURIA [None]
  - HYPOALBUMINAEMIA [None]
  - INTERNATIONAL NORMALISED RATIO INCREASED [None]
  - LOBAR PNEUMONIA [None]
  - OESOPHAGEAL STENOSIS [None]
  - PLEURAL EFFUSION [None]
  - PROTEIN TOTAL DECREASED [None]
  - PULMONARY THROMBOSIS [None]
  - RECTAL HAEMORRHAGE [None]
  - SCAR [None]
  - STAPHYLOCOCCAL BACTERAEMIA [None]
  - STEVENS-JOHNSON SYNDROME [None]
  - SUPRAVENTRICULAR TACHYCARDIA [None]
  - TOXIC EPIDERMAL NECROLYSIS [None]
  - URINARY TRACT INFECTION [None]
  - VOCAL CORD PARALYSIS [None]
  - VON WILLEBRAND'S FACTOR ACTIVITY INCREASED [None]
  - VULVOVAGINAL ADHESION [None]
